FAERS Safety Report 8430165-6 (Version None)
Quarter: 2012Q2

REPORT INFORMATION
  Report Type: 
  Country: None (occurrence: None)
  Receive Date: 20120612
  Receipt Date: 20120608
  Transmission Date: 20120825
  Serious: Yes (Other)
  Sender: FDA-Public Use
  Company Number: US-BRACCO-008168

PATIENT
  Sex: Male

DRUGS (2)
  1. GASTROGRAFIN [Suspect]
     Indication: COMPUTERISED TOMOGRAM ABDOMEN
     Dosage: GASTROGRAFIN DILUTED IN 16 OZ OF WATER (473 ML) ADMINISTERED VIA NG TUBE (PLACED IN LUNG)
     Dates: start: 20120608, end: 20120608
  2. GASTROGRAFIN [Suspect]
     Indication: PRODUCT USED FOR UNKNOWN INDICATION
     Dosage: GASTROGRAFIN DILUTED IN 16 OZ OF WATER (473 ML) ADMINISTERED VIA NG TUBE (PLACED IN LUNG)
     Dates: start: 20120608, end: 20120608

REACTIONS (2)
  - LUNG INFILTRATION [None]
  - DRUG ADMINISTRATION ERROR [None]
